FAERS Safety Report 9684280 (Version 1)
Quarter: 2013Q4

REPORT INFORMATION
  Report Type: Spontaneous
  Country: US (occurrence: US)
  Receive Date: 20131112
  Receipt Date: 20131112
  Transmission Date: 20140711
  Serious: Yes (Other)
  Sender: FDA-Public Use
  Company Number: PHHY2013US128173

PATIENT
  Age: 50 Year
  Sex: Female

DRUGS (1)
  1. PARACETAMOL [Suspect]

REACTIONS (6)
  - Metabolic acidosis [Recovering/Resolving]
  - Tachypnoea [Unknown]
  - Vomiting [Unknown]
  - Hyperammonaemia [Unknown]
  - Mental status changes [Unknown]
  - Somnolence [Unknown]
